FAERS Safety Report 5706534-1 (Version None)
Quarter: 2008Q2

REPORT INFORMATION
  Report Type: 
  Country: None (occurrence: None)
  Receive Date: 20080414
  Receipt Date: 20080401
  Transmission Date: 20081010
  Serious: Yes (Other)
  Sender: FDA-Public Use
  Company Number: 114-21880-08040383

PATIENT

DRUGS (2)
  1. REVLIMID [Suspect]
     Indication: MULTIPLE MYELOMA
     Dosage: 25 MG, QD X 21  DAYS OFF 7 DAYS, ORAL
     Route: 048
  2. DEXAMETHASONE TAB [Concomitant]

REACTIONS (6)
  - DIARRHOEA [None]
  - GRAFT VERSUS HOST DISEASE [None]
  - LEUKOPENIA [None]
  - MYALGIA [None]
  - PULMONARY EMBOLISM [None]
  - THROMBOCYTOPENIA [None]
